FAERS Safety Report 6552850-3 (Version None)
Quarter: 2010Q1

REPORT INFORMATION
  Report Type: 
  Country: None (occurrence: None)
  Receive Date: 20100122
  Receipt Date: 20100108
  Transmission Date: 20100710
  Serious: Yes (Other)
  Sender: FDA-Public Use
  Company Number: 2010SP000128

PATIENT
  Age: 47 Year
  Sex: Female

DRUGS (3)
  1. OMNARIS [Suspect]
     Indication: RHINITIS ALLERGIC
     Dosage: 200 UG; QD; NASAL; NASAL
     Route: 045
     Dates: start: 20090301, end: 20090301
  2. OMNARIS [Suspect]
     Indication: RHINITIS ALLERGIC
     Dosage: 200 UG; QD; NASAL; NASAL
     Route: 045
     Dates: start: 20090419, end: 20090422
  3. CEFPROZIL [Concomitant]

REACTIONS (1)
  - DRUG HYPERSENSITIVITY [None]
